FAERS Safety Report 8070414-X (Version None)
Quarter: 2011Q4

REPORT INFORMATION
  Report Type: 
  Country: None (occurrence: None)
  Receive Date: 20111221
  Receipt Date: 20110808
  Transmission Date: 20120403
  Serious: Yes (Death, Other)
  Sender: FDA-Public Use
  Company Number: PHEH2011US01192

PATIENT
  Sex: Male

DRUGS (3)
  1. ANTINEOPLASTIC AGENTS (NO INGREDIENTS/SUBSTANCES) [Concomitant]
  2. EXJADE [Suspect]
     Indication: MYELODYSPLASTIC SYNDROME
     Dates: start: 20090828, end: 20100914
  3. DIURETICS (NO INGREDIENTS/SUBSTANCES) [Concomitant]

REACTIONS (4)
  - ACUTE LEUKAEMIA [None]
  - PLATELET COUNT DECREASED [None]
  - RENAL FAILURE [None]
  - BLOOD CREATININE INCREASED [None]
